FAERS Safety Report 6071524-9 (Version None)
Quarter: 2009Q1

REPORT INFORMATION
  Report Type: 
  Country: None (occurrence: None)
  Receive Date: 20090205
  Receipt Date: 20090205
  Transmission Date: 20090719
  Serious: No
  Sender: FDA-Public Use
  Company Number: None

PATIENT
  Age: 76 Year
  Sex: Male

DRUGS (11)
  1. RANITIDINE [Suspect]
     Dates: start: 20051201, end: 20061218
  2. GINKGO BILOBA [Suspect]
     Dates: start: 20061204, end: 20061218
  3. ACETAMINOPHEN [Concomitant]
  4. PANTOPRAZOLE [Concomitant]
  5. LISINOPRIL [Concomitant]
  6. HYDROCHLOROTHIAZIDE [Concomitant]
  7. ATENOLOL [Concomitant]
  8. MIRTAZAPINE [Concomitant]
  9. LORAZEPAM [Concomitant]
  10. VENLAFAXINE HCL [Concomitant]
  11. TEMAZEPAM [Concomitant]

REACTIONS (13)
  - ABDOMINAL PAIN [None]
  - ALANINE AMINOTRANSFERASE INCREASED [None]
  - ANOREXIA [None]
  - ASPARTATE AMINOTRANSFERASE INCREASED [None]
  - BILIRUBIN CONJUGATED INCREASED [None]
  - BLOOD ALKALINE PHOSPHATASE INCREASED [None]
  - BLOOD BILIRUBIN INCREASED [None]
  - CHROMATURIA [None]
  - FAECES PALE [None]
  - FALL [None]
  - FATIGUE [None]
  - JAUNDICE CHOLESTATIC [None]
  - LIVER INJURY [None]
